FAERS Safety Report 19064593 (Version 2)
Quarter: 2021Q4

REPORT INFORMATION
  Report Type: Spontaneous
  Country: US (occurrence: US)
  Receive Date: 20210326
  Receipt Date: 20211124
  Transmission Date: 20220303
  Serious: Yes (Death, Other)
  Sender: FDA-Public Use
  Company Number: US-BRISTOL-MYERS SQUIBB COMPANY-BMS-2021-028788

PATIENT
  Age: 97 Year
  Sex: Male

DRUGS (1)
  1. ELIQUIS [Suspect]
     Active Substance: APIXABAN
     Indication: Cardiac disorder
     Dosage: 2.5 MILLIGRAM, BID
     Route: 048
     Dates: start: 2017

REACTIONS (7)
  - Completed suicide [Fatal]
  - Pain [Unknown]
  - Nausea [Unknown]
  - Confusional state [Unknown]
  - General physical condition abnormal [Unknown]
  - Asthenia [Unknown]
  - Blood pressure increased [Unknown]

NARRATIVE: CASE EVENT DATE: 20210319
